FAERS Safety Report 18431560 (Version 1)
Quarter: 2020Q4

REPORT INFORMATION
  Report Type: Spontaneous
  Country: US (occurrence: US)
  Receive Date: 20201027
  Receipt Date: 20201027
  Transmission Date: 20210114
  Serious: Yes (Life-Threatening, Hospitalization, Disabling)
  Sender: FDA-Public Use
  Company Number: None

PATIENT
  Age: 66 Year
  Sex: Female
  Weight: 77.85 kg

DRUGS (12)
  1. CHOLECALCIFEROL [Concomitant]
     Active Substance: CHOLECALCIFEROL
  2. TORSEMIDE. [Concomitant]
     Active Substance: TORSEMIDE
     Dates: start: 20191116
  3. AMLODIPINE [Concomitant]
     Active Substance: AMLODIPINE BESYLATE
     Dates: start: 20190923
  4. CALCIUM CARBONATE. [Concomitant]
     Active Substance: CALCIUM CARBONATE
  5. ISOSORBIDE MONONITRATE. [Concomitant]
     Active Substance: ISOSORBIDE MONONITRATE
     Dates: start: 20190923
  6. WARFARIN [Concomitant]
     Active Substance: WARFARIN
     Dates: start: 20191115
  7. ALPELISIB [Suspect]
     Active Substance: ALPELISIB
     Indication: PIK3CA-ACTIVATED MUTATION
     Route: 048
     Dates: start: 20200910, end: 20201011
  8. FULVESTRANT. [Concomitant]
     Active Substance: FULVESTRANT
     Dates: start: 20171108
  9. METOPROLOL SUCCINATE. [Concomitant]
     Active Substance: METOPROLOL SUCCINATE
     Dates: start: 20190923
  10. ALPELISIB [Suspect]
     Active Substance: ALPELISIB
     Indication: BREAST CANCER METASTATIC
     Route: 048
     Dates: start: 20200910, end: 20201011
  11. ESCITALOPRAM [Concomitant]
     Active Substance: ESCITALOPRAM OXALATE
     Dates: start: 20191115
  12. METOLAZONE. [Concomitant]
     Active Substance: METOLAZONE
     Dates: start: 20200116

REACTIONS (5)
  - Glycosylated haemoglobin increased [None]
  - Blood glucose increased [None]
  - Seizure [None]
  - Hypercoagulation [None]
  - Diabetic ketoacidosis [None]

NARRATIVE: CASE EVENT DATE: 20201011
